FAERS Safety Report 4639166-7 (Version None)
Quarter: 2005Q2

REPORT INFORMATION
  Report Type: 
  Country: None (occurrence: None)
  Receive Date: 20050418
  Receipt Date: 20050411
  Transmission Date: 20051028
  Serious: Yes (Hospitalization, Other)
  Sender: FDA-Public Use
  Company Number: 2005-04-0389

PATIENT
  Age: 51 Year
  Sex: Female

DRUGS (5)
  1. GENTAMICIN [Suspect]
     Indication: INFECTION
     Dosage: 4.4 MG/KG QD INTRAVENOUS
     Route: 042
  2. CEPHALOTHIN INJECTABLE SOLUTION [Concomitant]
  3. GLIMEPIRIDE [Concomitant]
  4. ASPIRIN [Concomitant]
  5. ALLOPURINOL [Concomitant]

REACTIONS (4)
  - ELECTROCARDIOGRAM QT PROLONGED [None]
  - HYPOCALCAEMIA [None]
  - HYPOMAGNESAEMIA [None]
  - PSEUDO-BARTTER SYNDROME [None]
